FAERS Safety Report 12206560 (Version 1)
Quarter: 2016Q1

REPORT INFORMATION
  Report Type: Spontaneous
  Country: US (occurrence: US)
  Receive Date: 20160324
  Receipt Date: 20160324
  Transmission Date: 20160526
  Serious: Yes (Other)
  Sender: FDA-Public Use
  Company Number: US-BEH-2016060260

PATIENT
  Sex: Female
  Weight: 132 kg

DRUGS (44)
  1. ZEMAIRA [Suspect]
     Active Substance: .ALPHA.1-PROTEINASE INHIBITOR HUMAN
     Indication: ALPHA-1 ANTI-TRYPSIN DEFICIENCY
     Route: 042
  2. PROGRAF [Concomitant]
     Active Substance: TACROLIMUS\TACROLIMUS ANHYDROUS
  3. FOLIC ACID. [Concomitant]
     Active Substance: FOLIC ACID
  4. VITAMIN D [Concomitant]
     Active Substance: CHOLECALCIFEROL
  5. STOOL SOFTNER [Concomitant]
     Active Substance: DOCUSATE SODIUM
  6. ZEMAIRA [Suspect]
     Active Substance: .ALPHA.1-PROTEINASE INHIBITOR HUMAN
     Indication: COR PULMONALE CHRONIC
     Route: 042
  7. LYRICA [Concomitant]
     Active Substance: PREGABALIN
  8. VITAMIN B12 [Concomitant]
     Active Substance: CYANOCOBALAMIN
  9. TIZANIDINE. [Concomitant]
     Active Substance: TIZANIDINE
  10. VITAMIN B6 [Concomitant]
     Active Substance: PYRIDOXINE HYDROCHLORIDE
  11. NOXAFIL [Concomitant]
     Active Substance: POSACONAZOLE
  12. DIPHENHYDRAMINE. [Concomitant]
     Active Substance: DIPHENHYDRAMINE
  13. SENOKOT [Concomitant]
     Active Substance: SENNOSIDES
  14. XYZAL [Concomitant]
     Active Substance: LEVOCETIRIZINE DIHYDROCHLORIDE
  15. ADVAIR HFA [Concomitant]
     Active Substance: FLUTICASONE PROPIONATE\SALMETEROL XINAFOATE
  16. SPIRIVA [Concomitant]
     Active Substance: TIOTROPIUM BROMIDE MONOHYDRATE
  17. LEVAQUIN [Concomitant]
     Active Substance: LEVOFLOXACIN
  18. SODIUM CHLORIDE. [Concomitant]
     Active Substance: SODIUM CHLORIDE
  19. XANAX [Concomitant]
     Active Substance: ALPRAZOLAM
  20. MELATONIN [Concomitant]
     Active Substance: MELATONIN
  21. CALCIUM [Concomitant]
     Active Substance: CALCIUM
  22. COMPLETE MULTIVITAMIN [Concomitant]
     Active Substance: VITAMINS
  23. ASPIRIN. [Concomitant]
     Active Substance: ASPIRIN
  24. PREDNISONE. [Concomitant]
     Active Substance: PREDNISONE
  25. ACYCLOVIR. [Concomitant]
     Active Substance: ACYCLOVIR
  26. EPIPEN [Concomitant]
     Active Substance: EPINEPHRINE
  27. NOVOLOG [Concomitant]
     Active Substance: INSULIN ASPART
  28. VITAMIN C [Concomitant]
     Active Substance: ASCORBIC ACID
  29. VITAMIN E [Concomitant]
     Active Substance: .ALPHA.-TOCOPHEROL
  30. CYMBALTA [Concomitant]
     Active Substance: DULOXETINE HYDROCHLORIDE
  31. HEPARIN [Concomitant]
     Active Substance: HEPARIN SODIUM
  32. ZANTAC [Concomitant]
     Active Substance: RANITIDINE HYDROCHLORIDE
  33. LIDOCAINE. [Concomitant]
     Active Substance: LIDOCAINE
  34. CALCIUM CHEW [Concomitant]
  35. CELLCEPT [Concomitant]
     Active Substance: MYCOPHENOLATE MOFETIL\MYCOPHENOLATE MOFETIL HYDROCHLORIDE
  36. MAGNESIUM OXIDE. [Concomitant]
     Active Substance: MAGNESIUM OXIDE
  37. FUROSEMIDE. [Concomitant]
     Active Substance: FUROSEMIDE
  38. NORCO [Concomitant]
     Active Substance: ACETAMINOPHEN\HYDROCODONE BITARTRATE
  39. POTASSIUM CHLORIDE. [Concomitant]
     Active Substance: POTASSIUM CHLORIDE
  40. GENTLE LAXATIVE EC [Concomitant]
  41. MOXIFLOXACIN. [Concomitant]
     Active Substance: MOXIFLOXACIN
  42. LEVEMIR [Concomitant]
     Active Substance: INSULIN DETEMIR
  43. PREVACID [Concomitant]
     Active Substance: LANSOPRAZOLE
  44. GLUCOSAMINE [Concomitant]
     Active Substance: GLUCOSAMINE

REACTIONS (2)
  - Fall [Recovering/Resolving]
  - Patella fracture [Recovering/Resolving]
